FAERS Safety Report 10676329 (Version 5)
Quarter: 2015Q1

REPORT INFORMATION
  Report Type: Spontaneous
  Country: BR (occurrence: BR)
  Receive Date: 20141226
  Receipt Date: 20150318
  Transmission Date: 20150720
  Serious: Yes (Hospitalization, Other)
  Sender: FDA-Public Use
  Company Number: BR-ASTRAZENECA-2014SE98242

PATIENT
  Sex: Female
  Weight: 65 kg

DRUGS (13)
  1. CYMBALTA [Concomitant]
     Active Substance: DULOXETINE HYDROCHLORIDE
     Indication: DEPRESSION
  2. CEBRALAT [Concomitant]
     Active Substance: CILOSTAZOL
  3. CLOPIDOGREL [Concomitant]
     Active Substance: CLOPIDOGREL BISULFATE
     Dates: end: 201501
  4. ATACAND [Suspect]
     Active Substance: CANDESARTAN CILEXETIL
     Indication: HYPERTENSION
     Route: 048
     Dates: start: 201410
  5. ATACAND [Suspect]
     Active Substance: CANDESARTAN CILEXETIL
     Indication: HYPERTENSION
     Route: 048
     Dates: start: 2004, end: 201409
  6. ATACAND [Suspect]
     Active Substance: CANDESARTAN CILEXETIL
     Indication: HYPERTENSION
     Route: 048
     Dates: start: 201409, end: 201410
  7. OMEPRAZOLE. [Suspect]
     Active Substance: OMEPRAZOLE
     Route: 048
  8. SINVASTACOR [Concomitant]
     Active Substance: SIMVASTATIN
     Indication: BLOOD CHOLESTEROL INCREASED
  9. BRILINTA [Suspect]
     Active Substance: TICAGRELOR
     Indication: ARTERIAL OCCLUSIVE DISEASE
     Route: 048
     Dates: start: 201412, end: 201501
  10. CYMBALTA [Concomitant]
     Active Substance: DULOXETINE HYDROCHLORIDE
     Indication: PAIN
  11. VITAMIN OMEGA FROM A TO Z [Concomitant]
  12. HYDROCHLOROTHIAZIDE. [Suspect]
     Active Substance: HYDROCHLOROTHIAZIDE
     Indication: HYPERTENSION
     Dosage: NON-AZ PRODUCT
     Route: 048
  13. CYMBALTA [Concomitant]
     Active Substance: DULOXETINE HYDROCHLORIDE
     Indication: SLEEP DISORDER

REACTIONS (11)
  - Peripheral swelling [Recovered/Resolved]
  - Haematochezia [Not Recovered/Not Resolved]
  - Blood pressure increased [Recovered/Resolved]
  - Anaemia [Recovering/Resolving]
  - Arterial occlusive disease [Recovering/Resolving]
  - Glucose tolerance impaired [Not Recovered/Not Resolved]
  - Dyspnoea [Recovered/Resolved]
  - Off label use [Recovered/Resolved]
  - Neuropathy peripheral [Unknown]
  - Intestinal polyp [Unknown]
  - Drug ineffective [Unknown]

NARRATIVE: CASE EVENT DATE: 201406
